FAERS Safety Report 5856534-6 (Version None)
Quarter: 2008Q3

REPORT INFORMATION
  Report Type: 
  Country: None (occurrence: None)
  Receive Date: 20080822
  Receipt Date: 20080822
  Transmission Date: 20090109
  Serious: Yes (Life-Threatening, Disabling)
  Sender: FDA-Public Use
  Company Number: None

PATIENT
  Sex: Male
  Weight: 93.8946 kg

DRUGS (1)
  1. QUININE FOR LEG CRAMPS [Suspect]
     Indication: MUSCLE SPASMS
     Dosage: 2X A DAY 2 MONTHS TO 3 MONTHS
     Dates: start: 20040301, end: 20040601

REACTIONS (10)
  - CEREBROVASCULAR ACCIDENT [None]
  - DIABETES MELLITUS [None]
  - EYE MOVEMENT DISORDER [None]
  - HAEMORRHAGE [None]
  - NEUROPATHY PERIPHERAL [None]
  - PHOTOSENSITIVITY REACTION [None]
  - PRURITUS [None]
  - RASH MACULAR [None]
  - SKIN DISCOLOURATION [None]
  - THROMBOSIS [None]
